FAERS Safety Report 13788130 (Version 2)
Quarter: 2017Q4

REPORT INFORMATION
  Report Type: Report from Study
  Country: AR (occurrence: AR)
  Receive Date: 20170725
  Receipt Date: 20171120
  Transmission Date: 20180320
  Serious: Yes (Death, Hospitalization)
  Sender: FDA-Public Use
  Company Number: AR-BAYER-2017-123214

PATIENT
  Age: 65 Year
  Sex: Male

DRUGS (1)
  1. NEXAVAR [Suspect]
     Active Substance: SORAFENIB
     Indication: THYROID CANCER
     Dosage: UNK
     Route: 048
     Dates: start: 20170428, end: 20170604

REACTIONS (3)
  - Peritonitis [Not Recovered/Not Resolved]
  - Thyroid cancer [Fatal]
  - Enterocolitis infectious [Recovering/Resolving]

NARRATIVE: CASE EVENT DATE: 20170604
